FAERS Safety Report 8299276 (Version 5)
Quarter: 2014Q1

REPORT INFORMATION
  Report Type: Report from Study
  Country: DE (occurrence: DE)
  Receive Date: 20111219
  Receipt Date: 20140318
  Transmission Date: 20141002
  Serious: Yes (Death, Hospitalization)
  Sender: FDA-Public Use
  Company Number: DE-ROCHE-1022692

PATIENT
  Age: 62 Year
  Sex: Female
  Weight: 84 kg

DRUGS (10)
  1. BEVACIZUMAB [Suspect]
     Indication: BREAST CANCER METASTATIC
     Route: 042
     Dates: start: 20111013, end: 20111013
  2. BEVACIZUMAB [Suspect]
     Route: 042
     Dates: start: 20111110, end: 20111110
  3. METFORMIN [Concomitant]
     Indication: DIABETES MELLITUS
     Route: 048
  4. ENALAPRIL [Concomitant]
     Indication: HYPERTENSION
     Route: 065
     Dates: start: 20000101
  5. HYDROCHLOROTHIAZIDE [Concomitant]
     Indication: HYPERTENSION
     Dosage: DAILY
     Route: 065
     Dates: start: 20000101
  6. PACLITAXEL [Concomitant]
     Indication: BREAST CANCER
     Route: 065
     Dates: start: 20111013
  7. PACLITAXEL [Concomitant]
     Route: 065
     Dates: start: 20111020
  8. PACLITAXEL [Concomitant]
     Route: 065
     Dates: start: 20111027
  9. PACLITAXEL [Concomitant]
     Route: 065
     Dates: start: 20111110
  10. PACLITAXEL [Concomitant]
     Route: 065
     Dates: start: 20111121

REACTIONS (3)
  - General physical health deterioration [Fatal]
  - Cerebral ischaemia [Fatal]
  - Metastases to central nervous system [Fatal]
